FAERS Safety Report 23400424 (Version 3)
Quarter: 2024Q1

REPORT INFORMATION
  Report Type: Other
  Country: US (occurrence: None)
  Receive Date: 20240115
  Receipt Date: 20240129
  Transmission Date: 20240409
  Serious: No
  Sender: FDA-Public Use
  Company Number: US-ROCHE-3485266

PATIENT
  Age: 51 Year
  Sex: Female

DRUGS (7)
  1. OCREVUS [Suspect]
     Active Substance: OCRELIZUMAB
     Indication: Relapsing multiple sclerosis
     Dosage: DATE OF TREATMENT: 06/JAN/2021, 06/JUL/2021, 06/JAN/2022, 05/JUL/2022, 06/JAN/2023, 07/JUL/2023, DAT
     Route: 042
     Dates: start: 20180430
  2. LANTUS [Concomitant]
     Active Substance: INSULIN GLARGINE
     Indication: Diabetes mellitus
     Dosage: MORNING
     Route: 058
  3. LANTUS [Concomitant]
     Active Substance: INSULIN GLARGINE
     Dosage: 3 TO 4 UNITS AT NIGHT
     Route: 058
  4. HUMALOG [Concomitant]
     Active Substance: INSULIN LISPRO
     Indication: Diabetes mellitus
     Dosage: 1 UNIT FOR EVERY 50/100
     Route: 058
  5. TIROSINT [Concomitant]
     Active Substance: LEVOTHYROXINE SODIUM
     Dosage: MORNING
     Route: 048
  6. VITAMIN D [Concomitant]
     Active Substance: VITAMIN D NOS
     Indication: Multiple sclerosis
     Dosage: 500 MCG
     Route: 048
  7. MUPIROCIN [Concomitant]
     Active Substance: MUPIROCIN

REACTIONS (7)
  - Staphylococcal infection [Not Recovered/Not Resolved]
  - Urticaria [Recovered/Resolved]
  - Wound [Recovered/Resolved]
  - Skin burning sensation [Recovered/Resolved]
  - Nausea [Recovered/Resolved]
  - Skin ulcer [Unknown]
  - Diabetes mellitus [Unknown]

NARRATIVE: CASE EVENT DATE: 20230101
